FAERS Safety Report 19577676 (Version 2)
Quarter: 2021Q3

REPORT INFORMATION
  Report Type: Spontaneous
  Country: US (occurrence: US)
  Receive Date: 20210719
  Receipt Date: 20210811
  Transmission Date: 20211014
  Serious: No
  Sender: FDA-Public Use
  Company Number: US-ORGANON-O2107USA000635

PATIENT
  Age: 25 Year
  Sex: Female
  Weight: 153 kg

DRUGS (2)
  1. NEXPLANON [Suspect]
     Active Substance: ETONOGESTREL
     Indication: CONTRACEPTION
     Dosage: 1 IMPLANT OF 68 MILLIGRAM IN LEFT ARM
     Route: 059
     Dates: start: 20191017, end: 20191017
  2. NEXPLANON [Suspect]
     Active Substance: ETONOGESTREL
     Indication: CONTRACEPTION
     Dosage: 1 IMPLANT OF 68 MG IN LEFT ARM, ONE TIME
     Route: 023
     Dates: start: 20191017

REACTIONS (5)
  - Intentional product misuse [Unknown]
  - Weight abnormal [Unknown]
  - Complication of device insertion [Recovered/Resolved]
  - Device breakage [Not Recovered/Not Resolved]
  - No adverse event [Unknown]

NARRATIVE: CASE EVENT DATE: 20191017
